FAERS Safety Report 5952085-9 (Version None)
Quarter: 2008Q4

REPORT INFORMATION
  Report Type: 
  Country: None (occurrence: None)
  Receive Date: 20081113
  Receipt Date: 20080320
  Transmission Date: 20090506
  Serious: No
  Sender: FDA-Public Use
  Company Number: A0716702A

PATIENT
  Age: 78 Year
  Sex: Female

DRUGS (9)
  1. COREG [Suspect]
     Dosage: 12.5MG TWICE PER DAY
     Route: 048
     Dates: start: 19950101
  2. DIOVAN [Concomitant]
  3. COUMADIN [Concomitant]
  4. ALMIRAL [Concomitant]
  5. METOLAZONE [Concomitant]
  6. CALCITRIOL [Concomitant]
  7. FUROSEMIDE [Concomitant]
  8. SPIRONOLACTONE [Concomitant]
  9. FOLIC ACID [Concomitant]

REACTIONS (2)
  - DYSPNOEA [None]
  - SWELLING [None]
